FAERS Safety Report 25661162 (Version 1)
Quarter: 2025Q3

REPORT INFORMATION
  Report Type: Spontaneous
  Country: US (occurrence: None)
  Receive Date: 20250808
  Receipt Date: 20250808
  Transmission Date: 20251021
  Serious: Yes (Hospitalization)
  Sender: FDA-CTU
  Company Number: None

PATIENT
  Age: 5 Month
  Sex: Male
  Weight: 6.75 kg

DRUGS (1)
  1. SIKLOS [Suspect]
     Active Substance: HYDROXYUREA
     Dosage: 1500 MG DAILY ORAL
     Route: 048
     Dates: start: 20250627, end: 20250630

REACTIONS (4)
  - Product dispensing error [None]
  - Incorrect dose administered [None]
  - Pyrexia [None]
  - Full blood count decreased [None]

NARRATIVE: CASE EVENT DATE: 20250627
